FAERS Safety Report 19379770 (Version 1)
Quarter: 2021Q2

REPORT INFORMATION
  Report Type: Other
  Country: DE (occurrence: DE)
  Receive Date: 20210607
  Receipt Date: 20210607
  Transmission Date: 20210717
  Serious: Yes (Other)
  Sender: FDA-Public Use
  Company Number: DE-SAPTALIS PHARMACEUTICALS,LLC-000089

PATIENT
  Sex: Male

DRUGS (16)
  1. TRIAMCINOLONE ACETONIDE. [Suspect]
     Active Substance: TRIAMCINOLONE ACETONIDE
     Indication: MULTIPLE SCLEROSIS
     Dosage: INTRATHECAL INJECTIONS
     Route: 037
  2. TRIAMCINOLONE ACETONIDE. [Suspect]
     Active Substance: TRIAMCINOLONE ACETONIDE
     Indication: MULTIPLE SCLEROSIS
     Dosage: INTRATHECAL INJECTIONS
     Route: 037
  3. TRIAMCINOLONE ACETONIDE. [Suspect]
     Active Substance: TRIAMCINOLONE ACETONIDE
     Indication: MULTIPLE SCLEROSIS
     Dosage: INTRATHECAL INJECTIONS
     Route: 037
  4. TRIAMCINOLONE ACETONIDE. [Suspect]
     Active Substance: TRIAMCINOLONE ACETONIDE
     Indication: MULTIPLE SCLEROSIS
     Dosage: INTRATHECAL INJECTIONS
     Route: 037
  5. TRIAMCINOLONE ACETONIDE. [Suspect]
     Active Substance: TRIAMCINOLONE ACETONIDE
     Indication: MULTIPLE SCLEROSIS
     Dosage: INTRATHECAL INJECTIONS
     Route: 037
  6. TRIAMCINOLONE ACETONIDE. [Suspect]
     Active Substance: TRIAMCINOLONE ACETONIDE
     Indication: MULTIPLE SCLEROSIS
     Dosage: INTRATHECAL INJECTIONS
     Route: 037
  7. TRIAMCINOLONE ACETONIDE. [Suspect]
     Active Substance: TRIAMCINOLONE ACETONIDE
     Indication: MULTIPLE SCLEROSIS
     Dosage: INTRATHECAL INJECTIONS
     Route: 037
  8. TRIAMCINOLONE ACETONIDE. [Suspect]
     Active Substance: TRIAMCINOLONE ACETONIDE
     Indication: MULTIPLE SCLEROSIS
     Dosage: INTRATHECAL INJECTIONS
     Route: 037
  9. TRIAMCINOLONE ACETONIDE. [Suspect]
     Active Substance: TRIAMCINOLONE ACETONIDE
     Indication: MULTIPLE SCLEROSIS
     Dosage: INTRATHECAL INJECTIONS
     Route: 037
  10. TRIAMCINOLONE ACETONIDE. [Suspect]
     Active Substance: TRIAMCINOLONE ACETONIDE
     Indication: MULTIPLE SCLEROSIS
     Dosage: INTRATHECAL INJECTIONS
     Route: 037
  11. TRIAMCINOLONE ACETONIDE. [Suspect]
     Active Substance: TRIAMCINOLONE ACETONIDE
     Indication: MULTIPLE SCLEROSIS
     Dosage: INTRATHECAL INJECTIONS
     Route: 037
  12. TRIAMCINOLONE ACETONIDE. [Suspect]
     Active Substance: TRIAMCINOLONE ACETONIDE
     Indication: MULTIPLE SCLEROSIS
     Dosage: INTRATHECAL INJECTIONS
     Route: 037
  13. TRIAMCINOLONE ACETONIDE. [Suspect]
     Active Substance: TRIAMCINOLONE ACETONIDE
     Indication: MULTIPLE SCLEROSIS
     Dosage: INTRATHECAL INJECTIONS
     Route: 037
  14. TRIAMCINOLONE ACETONIDE. [Suspect]
     Active Substance: TRIAMCINOLONE ACETONIDE
     Indication: MULTIPLE SCLEROSIS
     Dosage: INTRATHECAL INJECTIONS
     Route: 037
  15. TRIAMCINOLONE ACETONIDE. [Suspect]
     Active Substance: TRIAMCINOLONE ACETONIDE
     Indication: MULTIPLE SCLEROSIS
     Dosage: INTRATHECAL INJECTIONS
     Route: 037
  16. TRIAMCINOLONE ACETONIDE. [Suspect]
     Active Substance: TRIAMCINOLONE ACETONIDE
     Indication: MULTIPLE SCLEROSIS
     Dosage: INTRATHECAL INJECTIONS
     Route: 037

REACTIONS (2)
  - Off label use [Unknown]
  - Hypothalamic pituitary adrenal axis suppression [Unknown]
